FAERS Safety Report 9617809 (Version 1)
Quarter: 2013Q4

REPORT INFORMATION
  Report Type: Spontaneous
  Country: JP (occurrence: None)
  Receive Date: 20131009
  Receipt Date: 20131009
  Transmission Date: 20140711
  Serious: Yes (Hospitalization)
  Sender: FDA-Public Use
  Company Number: FK201304455

PATIENT
  Age: 33 Year
  Sex: Male

DRUGS (2)
  1. IDARUBICIN HYDROCHLORIDE (IDARUBICIN HYDROCHLORIDE) [Suspect]
     Indication: ACUTE MYELOID LEUKAEMIA
  2. CYTARABINE (CYTARABINE) (CYTARABINE) [Suspect]
     Indication: ACUTE MYELOID LEUKAEMIA
     Dosage: 3000 MG/M2, ON DAYS 1,3, AND 5

REACTIONS (4)
  - Febrile neutropenia [None]
  - Endophthalmitis [None]
  - Bacteraemia [None]
  - Streptococcal infection [None]
